FAERS Safety Report 15293541 (Version 1)
Quarter: 2018Q3

REPORT INFORMATION
  Report Type: Spontaneous
  Country: FR (occurrence: FR)
  Receive Date: 20180820
  Receipt Date: 20180820
  Transmission Date: 20181010
  Serious: Yes (Hospitalization)
  Sender: FDA-Public Use
  Company Number: FR-TEVA-2018-FR-944212

PATIENT
  Age: 47 Year
  Sex: Female
  Weight: 104 kg

DRUGS (9)
  1. XGEVA [Concomitant]
     Active Substance: DENOSUMAB
     Route: 042
     Dates: start: 201711
  2. LAROXYL 40 MG/ML, SOLUTION BUVABLE [Concomitant]
     Active Substance: AMITRIPTYLINE HYDROCHLORIDE
     Route: 048
  3. OXYCONTIN LP 10 MG, COMPRIM? PELLICUL? ? LIB?RATION PROLONG?E [Concomitant]
     Route: 048
  4. OXYNORMORO [Concomitant]
     Active Substance: OXYCODONE HYDROCHLORIDE
     Route: 048
  5. VERSATIS 5 %, EMPL?TRE M?DICAMENTEUX [Concomitant]
     Active Substance: LIDOCAINE
     Route: 062
  6. GEMZAR [Suspect]
     Active Substance: GEMCITABINE HYDROCHLORIDE
     Indication: BREAST CANCER
     Route: 042
     Dates: start: 20180223
  7. PACLITAXEL. [Suspect]
     Active Substance: PACLITAXEL
     Indication: BREAST CANCER
     Route: 042
     Dates: start: 20180223
  8. LYRICA [Concomitant]
     Active Substance: PREGABALIN
     Route: 048
  9. CARDENSIEL 2,5 MG, COMPRIM? PELLICUL? S?CABLE [Concomitant]
     Route: 048

REACTIONS (1)
  - Hepatocellular injury [Recovered/Resolved]

NARRATIVE: CASE EVENT DATE: 20180226
